FAERS Safety Report 21966490 (Version 1)
Quarter: 2023Q1

REPORT INFORMATION
  Report Type: Spontaneous
  Country: CA (occurrence: CA)
  Receive Date: 20230208
  Receipt Date: 20230208
  Transmission Date: 20230418
  Serious: Yes (Other)
  Sender: FDA-Public Use
  Company Number: CA-BROWN + BURK(UK) LIMITED-ML2023-00709

PATIENT
  Age: 75 Year
  Sex: Female

DRUGS (2)
  1. RANOLAZINE [Suspect]
     Active Substance: RANOLAZINE
     Indication: Angina pectoris
     Dosage: 500 MG - 1 TABLET BY MOUTH TWICE DAILY.
     Route: 048
  2. RANOLAZINE [Suspect]
     Active Substance: RANOLAZINE
     Dosage: 1000 MG - 1 TABLET BY MOUTH TWICE DAILY (DUE TO THE SIDE EFFECTS EXPERIENCED AT THIS INCREASED DOSE,
     Route: 048

REACTIONS (4)
  - Hypertension [Recovered/Resolved]
  - Headache [Unknown]
  - Constipation [Unknown]
  - Drug ineffective [Unknown]

NARRATIVE: CASE EVENT DATE: 20230118
